FAERS Safety Report 5167283-4 (Version None)
Quarter: 2006Q4

REPORT INFORMATION
  Report Type: 
  Country: None (occurrence: None)
  Receive Date: 20061124
  Receipt Date: 20061122
  Transmission Date: 20070319
  Serious: Yes (Other)
  Sender: FDA-Public Use
  Company Number: 232358

PATIENT

DRUGS (11)
  1. XOLAIR [Suspect]
     Indication: ASTHMA
     Dosage: 300 MG, Q2W; SUBCUTANEOUS
     Route: 058
     Dates: start: 20050516, end: 20060517
  2. OMALIZUMAB (OMALIZUMAB) PWDR + SOLVENT, INJECTION SOLN, 150MG [Suspect]
     Indication: ASTHMA
     Dosage: 300 MG, Q2W; SUBCUTANEOUS
     Route: 058
     Dates: start: 20060724
  3. SPIRIVA [Concomitant]
  4. PULMICORT [Concomitant]
  5. BYETTA [Concomitant]
  6. ZOLOFT [Concomitant]
  7. SYNTHROID [Concomitant]
  8. AMARYL [Concomitant]
  9. GLUCOPHAGE [Concomitant]
  10. AVAPRO [Concomitant]
  11. ZETIA [Concomitant]

REACTIONS (3)
  - LIVER DISORDER [None]
  - OSTEOPOROSIS [None]
  - SPINAL FRACTURE [None]
